FAERS Safety Report 6732967-0 (Version None)
Quarter: 2010Q2

REPORT INFORMATION
  Report Type: 
  Country: None (occurrence: None)
  Receive Date: 20100517
  Receipt Date: 20100503
  Transmission Date: 20101027
  Serious: Yes (Hospitalization)
  Sender: FDA-Public Use
  Company Number: US-1181813

PATIENT
  Sex: Male
  Weight: 113.3993 kg

DRUGS (2)
  1. PATANASE        0.6 % NASAL SPRAY [Suspect]
     Dosage: BID NASAL
     Route: 045
  2. LABETALOL HCL [Concomitant]

REACTIONS (3)
  - ANXIETY [None]
  - HEADACHE [None]
  - HYPERTENSION [None]
